FAERS Safety Report 16338679 (Version 1)
Quarter: 2019Q2

REPORT INFORMATION
  Report Type: Spontaneous
  Country: DE (occurrence: DE)
  Receive Date: 20190521
  Receipt Date: 20190521
  Transmission Date: 20190711
  Serious: Yes (Congenital Anomaly, Other)
  Sender: FDA-Public Use
  Company Number: DE-MYLANLABS-2019M1046704

PATIENT
  Age: 177 Day
  Weight: .7 kg

DRUGS (6)
  1. METOPROLOL. [Suspect]
     Active Substance: METOPROLOL
     Indication: HYPERTENSION
     Dosage: 71 MILLIGRAM, QD
     Route: 064
     Dates: start: 20111106
  2. METOPROLOL. [Suspect]
     Active Substance: METOPROLOL
     Dosage: 48 MILLIGRAM, QD
     Route: 064
     Dates: start: 20120421
  3. CYTOTEC [Concomitant]
     Active Substance: MISOPROSTOL
     Indication: LABOUR INDUCTION
     Dosage: UNK
     Route: 064
     Dates: start: 20120418, end: 20120419
  4. DEKRISTOL [Suspect]
     Active Substance: CHOLECALCIFEROL
     Indication: VITAMIN D DEFICIENCY
     Dosage: (20000 IE/WK)
     Route: 064
     Dates: start: 20111106, end: 20120421
  5. ATACAND [Suspect]
     Active Substance: CANDESARTAN CILEXETIL
     Indication: HYPERTENSION
     Dosage: 16 MILLIGRAM, QD
     Route: 064
     Dates: start: 20111106, end: 20111211
  6. FOLIO FORTE [Concomitant]
     Active Substance: FOLIC ACID\VITAMINS
     Indication: PROPHYLAXIS OF NEURAL TUBE DEFECT
     Dosage: .8 MG DAILY 5-12 GESTATIONAL WEEK
     Route: 064

REACTIONS (3)
  - Congenital cystic kidney disease [Unknown]
  - Congenital central nervous system anomaly [Unknown]
  - Foetal exposure during pregnancy [Recovered/Resolved]

NARRATIVE: CASE EVENT DATE: 20120515
